FAERS Safety Report 8198192-4 (Version None)
Quarter: 2012Q1

REPORT INFORMATION
  Report Type: 
  Country: None (occurrence: None)
  Receive Date: 20120309
  Receipt Date: 20111213
  Transmission Date: 20120608
  Serious: No
  Sender: FDA-Public Use
  Company Number: US-AMGEN-USASP2011066488

PATIENT
  Age: 75 Year
  Sex: Female

DRUGS (3)
  1. ZOCOR [Concomitant]
  2. SINGULAIR [Concomitant]
  3. PROLIA [Suspect]
     Indication: OSTEOPOROSIS POSTMENOPAUSAL
     Dosage: 60 MG, Q6MO
     Dates: start: 20111101

REACTIONS (5)
  - ARTHRALGIA [None]
  - BONE PAIN [None]
  - POLLAKIURIA [None]
  - MUSCULOSKELETAL STIFFNESS [None]
  - CHRONIC OBSTRUCTIVE PULMONARY DISEASE [None]
